FAERS Safety Report 8077631-3 (Version None)
Quarter: 2012Q1

REPORT INFORMATION
  Report Type: 
  Country: None (occurrence: None)
  Receive Date: 20120127
  Receipt Date: 20120123
  Transmission Date: 20120608
  Serious: Yes (Other)
  Sender: FDA-Public Use
  Company Number: US-PFIZER INC-2011305050

PATIENT
  Sex: Female
  Weight: 71.7 kg

DRUGS (5)
  1. CORTEF [Concomitant]
     Indication: HYPOPITUITARISM
     Dosage: UNK
  2. GENOTROPIN [Suspect]
     Indication: GROWTH HORMONE DEFICIENCY
     Dosage: 1.5 MG, 1X/DAY
     Route: 058
     Dates: start: 20080519
  3. GENOTROPIN [Suspect]
     Indication: DWARFISM
     Dosage: 0.9 MG, UNK
     Route: 058
     Dates: start: 20070101
  4. LEVOTHROID [Concomitant]
     Indication: HYPOPITUITARISM
     Dosage: UNK
  5. SPRINTEC [Concomitant]
     Indication: HYPOPITUITARISM

REACTIONS (7)
  - AUTISM [None]
  - MUSCULAR WEAKNESS [None]
  - PRURITUS [None]
  - FATIGUE [None]
  - HYPOTHYROIDISM [None]
  - ALOPECIA [None]
  - EPILEPSY [None]
